FAERS Safety Report 10866067 (Version 1)
Quarter: 2015Q1

REPORT INFORMATION
  Report Type: Spontaneous
  Country: JP (occurrence: JP)
  Receive Date: 20150225
  Receipt Date: 20150225
  Transmission Date: 20150721
  Serious: Yes (Disabling)
  Sender: FDA-Public Use
  Company Number: JP-009507513-1502JPN009530

PATIENT
  Age: 77 Year
  Sex: Male

DRUGS (5)
  1. PREMINENT TABLETS LD [Suspect]
     Active Substance: HYDROCHLOROTHIAZIDE\LOSARTAN POTASSIUM
     Indication: HYPERTENSION
     Dosage: DAILY DOSAGE UNKNOWN
     Route: 048
  2. PREMINENT TABLETS [Suspect]
     Active Substance: HYDROCHLOROTHIAZIDE\LOSARTAN POTASSIUM
     Indication: HYPERTENSION
     Dosage: DAILY DOSAGE UNKNOWN,QD
     Route: 048
     Dates: start: 200908
  3. WARFARIN [Concomitant]
     Active Substance: WARFARIN
     Dosage: POR, 3 MG, QD
     Route: 048
  4. LANDEL [Concomitant]
     Active Substance: UNSPECIFIED INGREDIENT
     Dosage: POR, 40 MG, QD
     Route: 048
  5. ALLOPURINOL. [Concomitant]
     Active Substance: ALLOPURINOL
     Dosage: POR, 100 MG, QD
     Route: 048

REACTIONS (2)
  - Glaucoma [Unknown]
  - Cataract [Unknown]
